FAERS Safety Report 9437401 (Version 2)
Quarter: 2013Q4

REPORT INFORMATION
  Report Type: Spontaneous
  Country: IT (occurrence: IT)
  Receive Date: 20130802
  Receipt Date: 20131017
  Transmission Date: 20140711
  Serious: Yes (Hospitalization)
  Sender: FDA-Public Use
  Company Number: IT-ROCHE-1256258

PATIENT
  Age: 71 Year
  Sex: Male
  Weight: 86 kg

DRUGS (4)
  1. MABTHERA [Suspect]
     Indication: LYMPHOMA
     Route: 042
     Dates: start: 20130429, end: 20130702
  2. VINCRISTINE SULFATE [Concomitant]
     Indication: NON-HODGKIN^S LYMPHOMA
     Route: 042
     Dates: start: 20130702, end: 20130702
  3. PEGYLATED LIPOSOMAL DOXORUBICIN [Concomitant]
     Indication: NON-HODGKIN^S LYMPHOMA
     Route: 042
     Dates: start: 20130702, end: 20130702
  4. ENDOXAN BAXTER [Concomitant]
     Indication: NON-HODGKIN^S LYMPHOMA
     Route: 042
     Dates: start: 20130702, end: 20130702

REACTIONS (1)
  - Interstitial lung disease [Recovered/Resolved]
